FAERS Safety Report 5124782-9 (Version None)
Quarter: 2006Q4

REPORT INFORMATION
  Report Type: 
  Country: None (occurrence: None)
  Receive Date: 20061011
  Receipt Date: 20060524
  Transmission Date: 20070319
  Serious: Yes (Other)
  Sender: FDA-Public Use
  Company Number: JP-ROCHE-449477

PATIENT
  Age: 49 Year
  Sex: Male
  Weight: 58 kg

DRUGS (2)
  1. PEGASYS [Suspect]
     Route: 058
     Dates: start: 20041116, end: 20050419
  2. PEGASYS [Suspect]
     Route: 058
     Dates: start: 20050426, end: 20050426

REACTIONS (1)
  - EOSINOPHILIA [None]
